FAERS Safety Report 4750509-6 (Version None)
Quarter: 2005Q3

REPORT INFORMATION
  Report Type: 
  Country: None (occurrence: None)
  Receive Date: 20050823
  Receipt Date: 20050525
  Transmission Date: 20060218
  Serious: Yes (Hospitalization, Disabling, Other)
  Sender: FDA-Public Use
  Company Number: US-MERCK-0505USA03170

PATIENT
  Age: 58 Year
  Sex: Female

DRUGS (6)
  1. FOSAMAX [Suspect]
     Indication: OSTEOPOROSIS
     Route: 048
     Dates: start: 20020824, end: 20041104
  2. AMBIEN [Concomitant]
     Indication: INSOMNIA
     Route: 048
     Dates: start: 20020204
  3. ALLEGRA [Concomitant]
     Indication: RHINITIS ALLERGIC
     Route: 048
     Dates: start: 20030307, end: 20050501
  4. EFFEXOR XR [Concomitant]
     Indication: DEPRESSION
     Route: 048
     Dates: start: 20030317, end: 20041201
  5. ZOLOFT [Concomitant]
     Indication: DEPRESSION
     Route: 048
     Dates: start: 20041201
  6. ADVAIR DISKUS 100/50 [Concomitant]
     Indication: ASTHMA
     Route: 055
     Dates: start: 20030521

REACTIONS (3)
  - DRUG INEFFECTIVE [None]
  - FALL [None]
  - FEMORAL NECK FRACTURE [None]
